FAERS Safety Report 6447346-3 (Version None)
Quarter: 2009Q4

REPORT INFORMATION
  Report Type: 
  Country: None (occurrence: None)
  Receive Date: 20091119
  Receipt Date: 20091109
  Transmission Date: 20100525
  Serious: Yes (Other)
  Sender: FDA-Public Use
  Company Number: FR-ELI_LILLY_AND_COMPANY-FR200909004568

PATIENT
  Age: 76 Year
  Sex: Female
  Weight: 80 kg

DRUGS (10)
  1. BYETTA [Suspect]
     Indication: TYPE 2 DIABETES MELLITUS
     Dosage: 5 UG, 2/D
     Route: 058
     Dates: start: 20090601, end: 20090701
  2. BYETTA [Suspect]
     Dosage: 10 UG, 2/D
     Route: 058
     Dates: start: 20090701
  3. METFORMIN HCL [Concomitant]
     Indication: TYPE 2 DIABETES MELLITUS
     Dosage: 1 G, 3/D
     Route: 048
     Dates: start: 19970101
  4. HUMULIN N [Concomitant]
     Indication: TYPE 2 DIABETES MELLITUS
     Dosage: 40 IU, EACH EVENING
     Route: 058
  5. NOVOMIX /01475801/ [Concomitant]
     Dosage: UNK, UNKNOWN
     Route: 065
  6. NOVOLOG [Concomitant]
     Dosage: UNK, UNKNOWN
     Route: 065
  7. FORTZAAR [Concomitant]
     Dosage: 100MG/25MG, DAILY (1/D)
     Route: 065
  8. PROPRANOLOL [Concomitant]
     Dosage: 40 MG, DAILY (1/D)
     Route: 065
  9. KARDEGIC /00002703/ [Concomitant]
     Dosage: 160 MG, DAILY (1/D)
     Route: 065
  10. LYRICA [Concomitant]
     Dosage: 300 MG, 2/D
     Route: 065

REACTIONS (2)
  - BASEDOW'S DISEASE [None]
  - OFF LABEL USE [None]
